FAERS Safety Report 17465171 (Version 6)
Quarter: 2020Q4

REPORT INFORMATION
  Report Type: Report from Study
  Country: BE (occurrence: BE)
  Receive Date: 20200227
  Receipt Date: 20201029
  Transmission Date: 20210113
  Serious: Yes (Hospitalization)
  Sender: FDA-Public Use
  Company Number: BE-ROCHE-2555774

PATIENT
  Age: 79 Year
  Sex: Female
  Weight: 73.7 kg

DRUGS (5)
  1. NATRIUM BICARBONAT [Concomitant]
     Indication: HAEMATURIA
     Route: 048
     Dates: start: 20200130
  2. SODIUM BICARBONATE. [Concomitant]
     Active Substance: SODIUM BICARBONATE
     Indication: HAEMATURIA
     Route: 048
     Dates: start: 20200130, end: 20200206
  3. ATEZOLIZUMAB. [Suspect]
     Active Substance: ATEZOLIZUMAB
     Indication: COLORECTAL CANCER METASTATIC
     Dosage: MOST RECENT DOSE OF ATEZOLIZUMAB PRIOR TO EVENT ONSET: 02/JAN/2020
     Route: 042
     Dates: start: 20190829
  4. BEVACIZUMAB. [Suspect]
     Active Substance: BEVACIZUMAB
     Indication: COLORECTAL CANCER METASTATIC
     Dosage: MOST RECENT DOSE OF BEVACIZUMAB PRIOR TO EVENT ONSET: 29/AUG/2019
     Route: 042
     Dates: start: 20190829
  5. MOXIFLOXACIN. [Concomitant]
     Active Substance: MOXIFLOXACIN
     Indication: URINARY TRACT INFECTION
     Route: 048
     Dates: start: 20200121, end: 20200205

REACTIONS (1)
  - Tubulointerstitial nephritis [Recovered/Resolved]

NARRATIVE: CASE EVENT DATE: 20200206
